FAERS Safety Report 25245558 (Version 1)
Quarter: 2025Q2

REPORT INFORMATION
  Report Type: Other
  Country: JP (occurrence: JP)
  Receive Date: 20250428
  Receipt Date: 20250428
  Transmission Date: 20250717
  Serious: Yes (Hospitalization, Other)
  Sender: Kanchan Healthcare
  Company Number: JP-Kanchan Healthcare INC-2175714

PATIENT
  Age: 78 Year
  Sex: Male

DRUGS (6)
  1. ETHAMBUTOL HYDROCHLORIDE [Suspect]
     Active Substance: ETHAMBUTOL HYDROCHLORIDE
     Indication: Bacillus Calmette-Guerin infection
  2. ISONIAZID [Suspect]
     Active Substance: ISONIAZID
  3. BCG VACCINE [Concomitant]
     Active Substance: BCG VACCINE
  4. STREPTOMYCIN [Suspect]
     Active Substance: STREPTOMYCIN SULFATE
  5. LEVOFLOXACIN [Suspect]
     Active Substance: LEVOFLOXACIN
  6. RIFAMPIN [Suspect]
     Active Substance: RIFAMPIN

REACTIONS (2)
  - Pancytopenia [Unknown]
  - Product use in unapproved indication [Unknown]
